FAERS Safety Report 8802648 (Version 1)
Quarter: 2012Q4

REPORT INFORMATION
  Report Type: 
  Country: US (occurrence: US)
  Receive Date: 20120921
  Receipt Date: 20120921
  Transmission Date: 20130627
  Serious: Yes (Death)
  Sender: FDA-Public Use
  Company Number: US-GILEAD-2012-0061562

PATIENT
  Sex: Female

DRUGS (10)
  1. LETAIRIS [Suspect]
     Indication: PULMONARY HYPERTENSION
     Dosage: 10 mg, UNK
     Route: 048
     Dates: start: 201009, end: 201208
  2. LETAIRIS [Suspect]
     Indication: SCLERODERMA
     Dosage: 5 UNK, UNK
     Route: 048
     Dates: start: 201008, end: 201009
  3. SILDENAFIL [Concomitant]
  4. FUROSEMIDE [Concomitant]
  5. LORAZEPAM [Concomitant]
  6. ALBUTEROL                          /00139501/ [Concomitant]
  7. CITALOPRAM [Concomitant]
  8. SIMVASTATIN [Concomitant]
  9. OMEPRAZOLE [Concomitant]
  10. IPRATROPIUM [Concomitant]

REACTIONS (3)
  - Death [Fatal]
  - General physical health deterioration [Unknown]
  - Oxygen consumption increased [Unknown]
